FAERS Safety Report 24778910 (Version 3)
Quarter: 2025Q2

REPORT INFORMATION
  Report Type: Spontaneous
  Country: SG (occurrence: SG)
  Receive Date: 20241226
  Receipt Date: 20250403
  Transmission Date: 20250716
  Serious: Yes (Hospitalization)
  Sender: MYLAN
  Company Number: SG-MYLANLABS-2024M1115131

PATIENT
  Age: 56 Year
  Sex: Female

DRUGS (12)
  1. PREGABALIN [Suspect]
     Active Substance: PREGABALIN
     Indication: Ischaemic limb pain
     Dosage: 75 MILLIGRAM, BID
  2. PREGABALIN [Suspect]
     Active Substance: PREGABALIN
     Indication: Neuralgia
     Dosage: 150 MILLIGRAM, BID
  3. PREGABALIN [Suspect]
     Active Substance: PREGABALIN
     Dosage: 225 MILLIGRAM, BID
  4. PREGABALIN [Suspect]
     Active Substance: PREGABALIN
  5. FENTANYL [Suspect]
     Active Substance: FENTANYL
     Indication: Ischaemic limb pain
     Dosage: 5 MICROGRAM, QH (5MCG/HOUR)
  6. FENTANYL [Suspect]
     Active Substance: FENTANYL
     Dosage: 15 MICROGRAM, QH (15MCG/HOUR)
  7. FENTANYL [Suspect]
     Active Substance: FENTANYL
  8. FENTANYL [Suspect]
     Active Substance: FENTANYL
     Dosage: 60 MICROGRAM, QH (UPTITRATED TO 60MCG EVERY HOUR)
  9. OXYCODONE [Suspect]
     Active Substance: OXYCODONE
     Indication: Ischaemic limb pain
     Dosage: 1.5 MILLIGRAM, QH (1.5MG/HOUR INFUSION)
  10. OXYCODONE [Suspect]
     Active Substance: OXYCODONE
     Dosage: 3 MILLIGRAM, QH (3MG/HOUR, INFUSION)
  11. OXYCODONE [Suspect]
     Active Substance: OXYCODONE
  12. NORTRIPTYLINE [Suspect]
     Active Substance: NORTRIPTYLINE
     Indication: Ischaemic limb pain
     Dosage: 10 MILLIGRAM, HS (10MG IN THE NIGHT)

REACTIONS (2)
  - Drug ineffective [Unknown]
  - Bradypnoea [Unknown]
